FAERS Safety Report 9887242 (Version 1)
Quarter: 2014Q1

REPORT INFORMATION
  Report Type: Spontaneous
  Country: US (occurrence: US)
  Receive Date: 20140211
  Receipt Date: 20140211
  Transmission Date: 20141002
  Serious: No
  Sender: FDA-Public Use
  Company Number: US-BIOGENIDEC-2014BI010139

PATIENT
  Sex: Female

DRUGS (11)
  1. TECFIDERA [Suspect]
     Indication: MULTIPLE SCLEROSIS
     Route: 048
  2. TECFIDERA [Suspect]
     Indication: MULTIPLE SCLEROSIS
     Route: 048
  3. RANITIDINE [Concomitant]
  4. SIMVASTATIN [Concomitant]
  5. FLUOXETINE [Concomitant]
  6. GABAPENTIN [Concomitant]
  7. PROMETHAZINE [Concomitant]
  8. MODAFINIL [Concomitant]
  9. VENLAFAXINE [Concomitant]
  10. LYRICA [Concomitant]
  11. BUPROPRION [Concomitant]

REACTIONS (3)
  - Intentional underdose [Unknown]
  - Nausea [Recovered/Resolved]
  - Flushing [Recovered/Resolved]
